FAERS Safety Report 4911971-9 (Version None)
Quarter: 2006Q1

REPORT INFORMATION
  Report Type: 
  Country: None (occurrence: None)
  Receive Date: 20060215
  Receipt Date: 20060209
  Transmission Date: 20060701
  Serious: Yes (Death)
  Sender: FDA-Public Use
  Company Number: PHBS2006JP02197

PATIENT
  Age: 26 Year
  Sex: Female

DRUGS (8)
  1. NEORAL [Suspect]
     Indication: NEPHROTIC SYNDROME
     Dosage: 100 MG/D
     Route: 048
     Dates: start: 20060201
  2. ONEALFA [Concomitant]
     Dosage: 0.5 UG/D
     Route: 048
  3. STEROIDS NOS [Concomitant]
     Dosage: 40 MG/D
     Route: 048
  4. LIPOVAS [Concomitant]
     Dosage: 10 MG/D
     Route: 048
  5. WARFARIN [Concomitant]
     Dosage: 1 MG/D
     Route: 048
  6. OMEPRAL [Concomitant]
     Route: 048
  7. LASIX [Concomitant]
     Route: 048
  8. GASCON [Concomitant]
     Route: 048

REACTIONS (3)
  - ALANINE AMINOTRANSFERASE INCREASED [None]
  - ASPARTATE AMINOTRANSFERASE INCREASED [None]
  - HEPATITIS FULMINANT [None]
